FAERS Safety Report 7141782-8 (Version None)
Quarter: 2010Q4

REPORT INFORMATION
  Report Type: 
  Country: None (occurrence: None)
  Receive Date: 20101202
  Receipt Date: 20101202
  Transmission Date: 20110411
  Serious: Yes (Other)
  Sender: FDA-Public Use
  Company Number: None

PATIENT
  Age: 84 Year
  Sex: Female
  Weight: 77.1115 kg

DRUGS (1)
  1. HUMALOG [Suspect]
     Indication: BLOOD GLUCOSE
     Dosage: 10 UNITS 3 X A DAY INJECTION IN STOMACH
     Dates: start: 20090301

REACTIONS (3)
  - ALOPECIA [None]
  - EAR PRURITUS [None]
  - RASH PRURITIC [None]
